FAERS Safety Report 15630163 (Version 1)
Quarter: 2018Q4

REPORT INFORMATION
  Report Type: Spontaneous
  Country: None (occurrence: US)
  Receive Date: 20181118
  Receipt Date: 20181118
  Transmission Date: 20190205
  Serious: No
  Sender: FDA-Public Use
  Company Number: US-AMPHASTAR PHARMACEUTICALS, INC.-2058992

PATIENT
  Age: 66 Year
  Sex: Female
  Weight: 58.64 kg

DRUGS (1)
  1. ENOXAPARIN SODIUM. [Suspect]
     Active Substance: ENOXAPARIN SODIUM
     Dates: start: 2009

REACTIONS (5)
  - Malaise [Unknown]
  - Device issue [Recovered/Resolved]
  - Injection site pain [Unknown]
  - Vertigo [Not Recovered/Not Resolved]
  - Dizziness [Unknown]
